FAERS Safety Report 8290820-8 (Version None)
Quarter: 2012Q2

REPORT INFORMATION
  Report Type: 
  Country: None (occurrence: None)
  Receive Date: 20120413
  Receipt Date: 20120411
  Transmission Date: 20120825
  Serious: Yes (Hospitalization)
  Sender: FDA-Public Use
  Company Number: ADR-2011-11134

PATIENT
  Sex: Female

DRUGS (1)
  1. LIORESAL INTRATHECAL(BADOFEN INJECTION) 500 MCG/ML [Suspect]
     Indication: MUSCLE SPASTICITY
     Dosage: 119 MCG, DAILY, INTRATH
     Route: 037

REACTIONS (5)
  - HEADACHE [None]
  - MUSCLE SPASTICITY [None]
  - NUCLEAR MAGNETIC RESONANCE IMAGING BRAIN ABNORMAL [None]
  - CONFUSIONAL STATE [None]
  - AREFLEXIA [None]
